FAERS Safety Report 17296970 (Version 1)
Quarter: 2020Q1

REPORT INFORMATION
  Report Type: Spontaneous
  Country: US (occurrence: US)
  Receive Date: 20200122
  Receipt Date: 20200122
  Transmission Date: 20200409
  Serious: Yes (Other)
  Sender: FDA-Public Use
  Company Number: US-AMGEN-USASP2020007844

PATIENT
  Age: 85 Year
  Sex: Male
  Weight: 84 kg

DRUGS (11)
  1. PEGFILGRASTIM [Suspect]
     Active Substance: PEGFILGRASTIM
     Dosage: UNK UNK, AFTER CHEMO (ON DAY 3)
     Route: 058
     Dates: start: 201111
  2. DOXAZOSIN [Concomitant]
     Active Substance: DOXAZOSIN MESYLATE
     Dosage: 2 MILLIGRAM, QHS (AT BEDTIME)
     Route: 048
  3. COLCHICINE. [Concomitant]
     Active Substance: COLCHICINE
     Indication: PROPHYLAXIS
     Dosage: 0.6 MILLIGRAM, QD
     Route: 048
     Dates: start: 201103
  4. FILGRASTIM [Suspect]
     Active Substance: FILGRASTIM
     Indication: PRODUCT USED FOR UNKNOWN INDICATION
     Dosage: UNK
     Route: 058
     Dates: start: 201111
  5. RITUXIMAB. [Concomitant]
     Active Substance: RITUXIMAB
     Indication: CHRONIC LYMPHOCYTIC LEUKAEMIA
     Dosage: UNK (ON DAY 1)
     Route: 042
     Dates: start: 201110
  6. TESTOSTERONE ENANTHATE. [Concomitant]
     Active Substance: TESTOSTERONE ENANTHATE
     Dosage: 200 MILLIGRAM, QMO
     Route: 030
  7. POLYSACCHARIDE-IRON COMPLEX [Concomitant]
     Active Substance: FERRIC POLYSACCHARIDE COMPLEX
     Dosage: 150 MILLIGRAM (OF IRON), QD
     Route: 048
  8. BENDAMUSTINE [Concomitant]
     Active Substance: BENDAMUSTINE
     Indication: CHRONIC LYMPHOCYTIC LEUKAEMIA
     Dosage: UNK (ON DAYS 1 AND 2)
     Route: 042
     Dates: start: 201110
  9. ACETAMINOPHEN. [Concomitant]
     Active Substance: ACETAMINOPHEN
     Indication: CHONDROCALCINOSIS PYROPHOSPHATE
     Dosage: 500 TO 1000 MG, EVERY FOUR TO SIX HOURS AS NEEDED
     Route: 048
  10. PEGFILGRASTIM [Suspect]
     Active Substance: PEGFILGRASTIM
     Indication: PRODUCT USED FOR UNKNOWN INDICATION
     Dosage: UNK UNK, AFTER CHEMO (ON DAY 3)
     Route: 058
     Dates: start: 201110, end: 201110
  11. OMEPRAZOLE. [Concomitant]
     Active Substance: OMEPRAZOLE
     Dosage: 20 MILLIGRAM, QD
     Route: 048

REACTIONS (1)
  - Chondrocalcinosis pyrophosphate [Unknown]

NARRATIVE: CASE EVENT DATE: 201111
